FAERS Safety Report 25522587 (Version 1)
Quarter: 2025Q3

REPORT INFORMATION
  Report Type: Report from Study
  Country: BR (occurrence: BR)
  Receive Date: 20250707
  Receipt Date: 20250707
  Transmission Date: 20251020
  Serious: Yes (Other)
  Sender: JOHNSON AND JOHNSON
  Company Number: BR-JNJFOC-20250705664

PATIENT
  Age: 63 Year
  Sex: Female
  Weight: 70 kg

DRUGS (2)
  1. GOLIMUMAB [Suspect]
     Active Substance: GOLIMUMAB
     Indication: Rheumatoid arthritis
     Route: 058
  2. GOLIMUMAB [Suspect]
     Active Substance: GOLIMUMAB

REACTIONS (1)
  - Pneumonia [Not Recovered/Not Resolved]

NARRATIVE: CASE EVENT DATE: 20250625
